FAERS Safety Report 5098738-9 (Version None)
Quarter: 2006Q3

REPORT INFORMATION
  Report Type: 
  Country: None (occurrence: None)
  Receive Date: 20060907
  Receipt Date: 20060728
  Transmission Date: 20061208
  Serious: Yes (Hospitalization, Other)
  Sender: FDA-Public Use
  Company Number: US-GLAXOSMITHKLINE-A0614058A

PATIENT
  Age: 70 Year
  Sex: Male
  Weight: 151.8 kg

DRUGS (8)
  1. AVANDIA [Suspect]
     Dosage: 8MG PER DAY
     Route: 048
     Dates: start: 20030101, end: 20060720
  2. METFORMIN HCL [Concomitant]
  3. LASIX [Concomitant]
     Dosage: 40MG PER DAY
  4. LISINOPRIL [Concomitant]
     Dosage: 10MG PER DAY
  5. SPIRIVA [Concomitant]
     Dosage: 1MG PER DAY
  6. SIMVASTATIN [Concomitant]
     Dosage: 20MG AT NIGHT
  7. NOVOLOG [Concomitant]
  8. ASMANEX [Concomitant]
     Dosage: 2PUFF TWICE PER DAY
     Route: 055

REACTIONS (3)
  - ASTHENIA [None]
  - DYSPNOEA [None]
  - PLEURAL EFFUSION [None]
